FAERS Safety Report 16257876 (Version 2)
Quarter: 2020Q1

REPORT INFORMATION
  Report Type: Spontaneous
  Country: US (occurrence: US)
  Receive Date: 20190430
  Receipt Date: 20200313
  Transmission Date: 20200409
  Serious: Yes (Death, Hospitalization, Other)
  Sender: FDA-Public Use
  Company Number: US-009507513-1904USA012909

PATIENT
  Sex: Male
  Weight: 95.24 kg

DRUGS (2)
  1. JANUVIA [Suspect]
     Active Substance: SITAGLIPTIN PHOSPHATE
     Indication: PRODUCT USED FOR UNKNOWN INDICATION
     Dosage: UNK
     Route: 048
     Dates: start: 2006, end: 201602
  2. BYETTA [Suspect]
     Active Substance: EXENATIDE
     Indication: PRODUCT USED FOR UNKNOWN INDICATION
     Dosage: UNK
     Route: 048
     Dates: start: 200510, end: 2006

REACTIONS (26)
  - Intestinal obstruction [Unknown]
  - Small intestinal obstruction [Unknown]
  - Leukocytosis [Unknown]
  - Neuropathy peripheral [Not Recovered/Not Resolved]
  - Tachycardia [Unknown]
  - Pancreatic carcinoma metastatic [Fatal]
  - Oedema [Unknown]
  - Diarrhoea [Unknown]
  - Hiccups [Unknown]
  - Cachexia [Unknown]
  - Dry eye [Unknown]
  - Impaired gastric emptying [Unknown]
  - Blood triglycerides increased [Not Recovered/Not Resolved]
  - Diabetic neuropathy [Not Recovered/Not Resolved]
  - Paraesthesia [Unknown]
  - Abdominal pain [Unknown]
  - Malignant ascites [Unknown]
  - Sleep disorder [Unknown]
  - Dehydration [Unknown]
  - Gastrointestinal polyp [Unknown]
  - Central venous catheterisation [Unknown]
  - Cardiovascular disorder [Unknown]
  - Hypercholesterolaemia [Not Recovered/Not Resolved]
  - Hyperlipidaemia [Not Recovered/Not Resolved]
  - Pulmonary embolism [Unknown]
  - Vomiting [Unknown]

NARRATIVE: CASE EVENT DATE: 201512
